FAERS Safety Report 21218736 (Version 1)
Quarter: 2022Q3

REPORT INFORMATION
  Report Type: Spontaneous
  Country: US (occurrence: US)
  Receive Date: 20220816
  Receipt Date: 20220816
  Transmission Date: 20221027
  Serious: No
  Sender: FDA-Public Use
  Company Number: US-MYLANLABS-2022M1084089

PATIENT
  Sex: Female
  Weight: 82.55 kg

DRUGS (4)
  1. FENTANYL TRANSDERMAL SYSTEM [Suspect]
     Active Substance: FENTANYL
     Indication: Product used for unknown indication
     Dosage: 75 MICROGRAM, QD (75 MCG/HR)
     Route: 062
  2. PERCOCET [Concomitant]
     Active Substance: ACETAMINOPHEN\OXYCODONE HYDROCHLORIDE
     Dosage: 10 MILLIGRAM
     Route: 065
  3. LYRICA [Concomitant]
     Active Substance: PREGABALIN
     Dosage: 50 MILLIGRAM
     Route: 065
  4. DILANTIN [Concomitant]
     Active Substance: PHENYTOIN
     Dosage: 8 MILLIGRAM
     Route: 065

REACTIONS (9)
  - Product adhesion issue [Unknown]
  - Pain [Unknown]
  - Wrong technique in product usage process [Unknown]
  - Application site pruritus [Unknown]
  - Application site irritation [Unknown]
  - Application site erythema [Unknown]
  - Hyperhidrosis [Unknown]
  - Hot flush [Unknown]
  - Application site swelling [Unknown]
